FAERS Safety Report 22152375 (Version 1)
Quarter: 2023Q1

REPORT INFORMATION
  Report Type: Spontaneous
  Country: US (occurrence: US)
  Receive Date: 20230329
  Receipt Date: 20230329
  Transmission Date: 20230418
  Serious: No
  Sender: FDA-Public Use
  Company Number: US-PFIZER INC-PV202300057805

PATIENT
  Age: 37 Year
  Sex: Female

DRUGS (5)
  1. EUCRISA [Suspect]
     Active Substance: CRISABOROLE
     Indication: Dermatitis atopic
     Dosage: ALTERNATING WITH MOMETASONE
     Route: 061
  2. EUCRISA [Suspect]
     Active Substance: CRISABOROLE
     Indication: Eczema
  3. EUCRISA [Suspect]
     Active Substance: CRISABOROLE
     Indication: Xerosis
  4. MOMETASONE [Concomitant]
     Active Substance: MOMETASONE
     Dosage: 0.1% TOPICAL OINTMENT ALTERNATING WITH EUCRISA
     Route: 061
  5. OPZELURA [Concomitant]
     Active Substance: RUXOLITINIB PHOSPHATE
     Dosage: TO AFFECTED AREA ON RIGHT HAND
     Route: 061

REACTIONS (2)
  - Drug ineffective [Unknown]
  - Off label use [Unknown]
